FAERS Safety Report 25533426 (Version 1)
Quarter: 2025Q3

REPORT INFORMATION
  Report Type: Spontaneous
  Country: VN (occurrence: VN)
  Receive Date: 20250709
  Receipt Date: 20250709
  Transmission Date: 20251021
  Serious: Yes (Life-Threatening, Hospitalization)
  Sender: ENDO
  Company Number: VN-ENDO USA, INC.-2025-001485

PATIENT
  Age: 70 Year
  Sex: Female

DRUGS (10)
  1. AMITRIPTYLINE HYDROCHLORIDE [Suspect]
     Active Substance: AMITRIPTYLINE HYDROCHLORIDE
     Indication: Migraine
     Route: 048
  2. AMITRIPTYLINE HYDROCHLORIDE [Suspect]
     Active Substance: AMITRIPTYLINE HYDROCHLORIDE
     Indication: Sleep disorder
     Route: 065
  3. AMLODIPINE [Concomitant]
     Active Substance: AMLODIPINE BESYLATE
     Indication: Hypertension
     Route: 065
  4. BERBERINE [Concomitant]
     Active Substance: BERBERINE
     Indication: Diarrhoea
     Route: 048
  5. FLUNARIZINE [Concomitant]
     Active Substance: FLUNARIZINE
     Indication: Migraine
     Route: 065
  6. FLUNARIZINE [Concomitant]
     Active Substance: FLUNARIZINE
     Indication: Sleep disorder
  7. ACETAMINOPHEN [Concomitant]
     Active Substance: ACETAMINOPHEN
     Indication: Migraine
     Dosage: 500 MILLIGRAM, BID
     Route: 065
  8. ACETAMINOPHEN [Concomitant]
     Active Substance: ACETAMINOPHEN
     Indication: Sleep disorder
  9. MAGNESIUM LACTATE AND VITAMIN B6 [Concomitant]
     Indication: Migraine
     Route: 065
  10. MAGNESIUM LACTATE AND VITAMIN B6 [Concomitant]
     Indication: Sleep disorder

REACTIONS (11)
  - Toxicity to various agents [Recovered/Resolved]
  - Unresponsive to stimuli [Recovered/Resolved]
  - Product appearance confusion [Recovered/Resolved]
  - Coma [Recovered/Resolved]
  - Electrocardiogram QRS complex prolonged [Recovered/Resolved]
  - Electrocardiogram QT prolonged [Recovered/Resolved]
  - Loss of consciousness [Recovered/Resolved]
  - Sinus tachycardia [Recovered/Resolved]
  - Mental status changes [Recovered/Resolved]
  - Accidental overdose [Recovered/Resolved]
  - Off label use [Unknown]
